FAERS Safety Report 12473691 (Version 5)
Quarter: 2017Q2

REPORT INFORMATION
  Report Type: Spontaneous
  Country: US (occurrence: US)
  Receive Date: 20160616
  Receipt Date: 20170411
  Transmission Date: 20170830
  Serious: Yes (Hospitalization)
  Sender: FDA-Public Use
  Company Number: US-ACTELION-A-US2016-137619

PATIENT
  Age: 40 Year
  Sex: Female

DRUGS (13)
  1. REMODULIN [Concomitant]
     Active Substance: TREPROSTINIL
  2. TRAMADOL. [Concomitant]
     Active Substance: TRAMADOL
  3. TRACLEER [Suspect]
     Active Substance: BOSENTAN
     Indication: PULMONARY ARTERIAL HYPERTENSION
     Dosage: 125 MG, BID
     Route: 048
     Dates: start: 20120731
  4. ADCIRCA [Concomitant]
     Active Substance: TADALAFIL
  5. OXYCODONE [Concomitant]
     Active Substance: OXYCODONE
  6. FERROUS FUMARATE [Concomitant]
     Active Substance: FERROUS FUMARATE
  7. DOCUSATE [Concomitant]
     Active Substance: DOCUSATE
  8. DIGOXIN. [Concomitant]
     Active Substance: DIGOXIN
  9. TRACLEER [Suspect]
     Active Substance: BOSENTAN
     Dosage: 125 MG, BID
     Route: 048
     Dates: start: 200704
  10. VELETRI [Suspect]
     Active Substance: EPOPROSTENOL
     Indication: PULMONARY ARTERIAL HYPERTENSION
     Dosage: 24 NG/KG, PER MIN
     Route: 042
     Dates: start: 20160906
  11. COUMADIN [Concomitant]
     Active Substance: WARFARIN SODIUM
  12. PREDNISOLONE. [Concomitant]
     Active Substance: PREDNISOLONE
  13. ALLOPURINOL. [Concomitant]
     Active Substance: ALLOPURINOL

REACTIONS (7)
  - Dyspnoea [Not Recovered/Not Resolved]
  - Oedema peripheral [Not Recovered/Not Resolved]
  - Nausea [Not Recovered/Not Resolved]
  - Headache [Unknown]
  - Pain in jaw [Not Recovered/Not Resolved]
  - Dyspnoea exertional [Not Recovered/Not Resolved]
  - Fluid retention [Not Recovered/Not Resolved]
